FAERS Safety Report 14850210 (Version 2)
Quarter: 2019Q2

REPORT INFORMATION
  Report Type: Spontaneous
  Country: ES (occurrence: ES)
  Receive Date: 20180505
  Receipt Date: 20190605
  Transmission Date: 20190711
  Serious: Yes (Hospitalization, Other)
  Sender: FDA-Public Use
  Company Number: ES-ROCHE-2118565

PATIENT
  Age: 84 Year
  Sex: Male

DRUGS (12)
  1. CLONAZEPAM. [Suspect]
     Active Substance: CLONAZEPAM
     Indication: OFF LABEL USE
  2. CLONAZEPAM. [Suspect]
     Active Substance: CLONAZEPAM
     Indication: PRODUCT USED FOR UNKNOWN INDICATION
     Route: 065
  3. FLOMAX [Suspect]
     Active Substance: TAMSULOSIN HYDROCHLORIDE
     Indication: PRODUCT USED FOR UNKNOWN INDICATION
     Dosage: 0.4 MG, UNKNOWN FREQ.
     Route: 065
  4. SPIRIVA [Suspect]
     Active Substance: TIOTROPIUM BROMIDE MONOHYDRATE
     Indication: OFF LABEL USE
  5. QUETIAPINE. [Suspect]
     Active Substance: QUETIAPINE
     Indication: RESTLESSNESS
     Dosage: 25 MG, UNKNOWN FREQ. (12.5 MG OF FIXED FORM IN THE DINNERS)
     Route: 065
  6. QUETIAPINE. [Suspect]
     Active Substance: QUETIAPINE
     Indication: OFF LABEL USE
  7. FLOMAX [Suspect]
     Active Substance: TAMSULOSIN HYDROCHLORIDE
     Indication: OFF LABEL USE
  8. OLANZAPINE. [Suspect]
     Active Substance: OLANZAPINE
     Indication: PRODUCT USED FOR UNKNOWN INDICATION
     Route: 065
  9. DONEPEZIL. [Suspect]
     Active Substance: DONEPEZIL
     Indication: PRODUCT USED FOR UNKNOWN INDICATION
     Route: 065
  10. DONEPEZIL. [Suspect]
     Active Substance: DONEPEZIL
     Indication: OFF LABEL USE
  11. OLANZAPINE. [Suspect]
     Active Substance: OLANZAPINE
     Indication: OFF LABEL USE
  12. SPIRIVA [Suspect]
     Active Substance: TIOTROPIUM BROMIDE MONOHYDRATE
     Indication: PRODUCT USED FOR UNKNOWN INDICATION
     Dosage: 18 MICROG, ONCE DAILY (INHALATION)
     Route: 050

REACTIONS (12)
  - Pyrexia [Recovered/Resolved]
  - Neuroleptic malignant syndrome [Recovered/Resolved]
  - Muscle rigidity [Recovered/Resolved]
  - Respiratory tract infection [Recovered/Resolved]
  - Respiratory failure [Recovered/Resolved]
  - Hyperhidrosis [Recovered/Resolved]
  - Acute kidney injury [Recovered/Resolved]
  - Myoclonus [Recovered/Resolved]
  - Off label use [Unknown]
  - Product use in unapproved indication [Unknown]
  - Depressed level of consciousness [Recovered/Resolved]
  - Tremor [Recovered/Resolved]
